FAERS Safety Report 9690260 (Version 1)
Quarter: 2013Q4

REPORT INFORMATION
  Report Type: Spontaneous
  Country: US (occurrence: None)
  Receive Date: 20131114
  Receipt Date: 20131114
  Transmission Date: 20140711
  Serious: No
  Sender: FDA-Public Use
  Company Number: None

PATIENT
  Age: 60 Year
  Sex: Female

DRUGS (1)
  1. XELJANZ [Suspect]
     Dosage: APPROX 2 WEEKS
     Route: 048

REACTIONS (3)
  - Nasal congestion [None]
  - Oropharyngeal pain [None]
  - Nasopharyngitis [None]
